FAERS Safety Report 21903025 (Version 3)
Quarter: 2023Q1

REPORT INFORMATION
  Report Type: Report from Study
  Country: JP (occurrence: JP)
  Receive Date: 20230124
  Receipt Date: 20230222
  Transmission Date: 20230417
  Serious: Yes (Hospitalization)
  Sender: FDA-Public Use
  Company Number: JP-Eisai-202211979_ABBA_C_1

PATIENT
  Age: 60 Year
  Sex: Male
  Weight: 71 kg

DRUGS (7)
  1. LECANEMAB [Suspect]
     Active Substance: LECANEMAB
     Indication: Dementia Alzheimer^s type
     Dosage: PLACEBO
     Route: 042
     Dates: start: 20200302, end: 20210812
  2. LECANEMAB [Suspect]
     Active Substance: LECANEMAB
     Dosage: OPEN LABEL
     Route: 042
     Dates: start: 20210826, end: 20221201
  3. DAYVIGO [Concomitant]
     Active Substance: LEMBOREXANT
     Indication: Insomnia
     Route: 048
     Dates: start: 20221122
  4. RIVASTIGMINE [Concomitant]
     Active Substance: RIVASTIGMINE
     Indication: Dementia Alzheimer^s type
     Route: 062
     Dates: start: 20191108
  5. IRBESARTAN [Concomitant]
     Active Substance: IRBESARTAN
     Indication: Hypertension
     Route: 048
     Dates: start: 20220520
  6. AMLODIPINE [Concomitant]
     Active Substance: AMLODIPINE BESYLATE
     Indication: Hypertension
     Route: 048
     Dates: start: 20200303
  7. GLYCOSAMINOGLYCANS [Concomitant]
     Active Substance: GLYCOSAMINOGLYCANS
     Indication: Eczema
     Route: 061
     Dates: start: 20220609

REACTIONS (1)
  - Neuropsychiatric symptoms [Not Recovered/Not Resolved]

NARRATIVE: CASE EVENT DATE: 20221110
